FAERS Safety Report 5724171-X (Version None)
Quarter: 2008Q2

REPORT INFORMATION
  Report Type: 
  Country: None (occurrence: None)
  Receive Date: 20080430
  Receipt Date: 20080424
  Transmission Date: 20081010
  Serious: Yes (Other)
  Sender: FDA-Public Use
  Company Number: PHRM2008FR01398

PATIENT
  Age: 20 Year
  Sex: Male

DRUGS (2)
  1. ZADITEN [Suspect]
     Indication: URTICARIA THERMAL
     Dosage: 2 MG, QD
     Route: 048
     Dates: start: 20050101
  2. XYZAL [Concomitant]

REACTIONS (2)
  - ELECTROCARDIOGRAM ABNORMAL [None]
  - ELECTROCARDIOGRAM REPOLARISATION ABNORMALITY [None]
